FAERS Safety Report 6158907-3 (Version None)
Quarter: 2009Q2

REPORT INFORMATION
  Report Type: 
  Country: None (occurrence: None)
  Receive Date: 20090417
  Receipt Date: 20090407
  Transmission Date: 20091009
  Serious: Yes (Other)
  Sender: FDA-Public Use
  Company Number: US-BAYER-US-2006-027147

PATIENT

DRUGS (3)
  1. LEUKINE [Suspect]
     Indication: PROSTATE CANCER
     Dosage: 250 MCG/M2/D, DAYS 1-14
     Route: 058
  2. ANTI-CTLA-4 ANTIBIODY [Suspect]
     Indication: PROSTATE CANCER
     Dosage: UNK, UNK
     Route: 042
  3. KEYHOLE LIMPET HEMOCYANIN (KLH) [Suspect]
     Dosage: 50 MCG, DAY 1
     Route: 023

REACTIONS (1)
  - TEMPORAL ARTERITIS [None]
